FAERS Safety Report 9381673 (Version 1)
Quarter: 2013Q3

REPORT INFORMATION
  Report Type: Spontaneous
  Country: CH (occurrence: CH)
  Receive Date: 20130703
  Receipt Date: 20130703
  Transmission Date: 20140515
  Serious: Yes (Hospitalization)
  Sender: FDA-Public Use
  Company Number: CH-ASTRAZENECA-2013SE48989

PATIENT
  Age: 89 Year
  Sex: Female
  Weight: 62.7 kg

DRUGS (10)
  1. BELOC ZOK [Suspect]
     Indication: ATRIAL FIBRILLATION
     Route: 048
     Dates: start: 20130408, end: 20130424
  2. BELOC ZOK [Suspect]
     Indication: ATRIAL FLUTTER
     Route: 048
     Dates: start: 20130408, end: 20130424
  3. DAFALGAN [Suspect]
     Indication: PAIN
     Route: 048
     Dates: start: 20130410, end: 20130424
  4. NEXIUM [Suspect]
     Route: 042
     Dates: start: 20130412, end: 20130417
  5. NEXIUM [Suspect]
     Route: 048
     Dates: start: 20130417, end: 20130426
  6. FLUCONAZOLE [Suspect]
     Indication: FUNGAL INFECTION
     Route: 048
     Dates: start: 20130417, end: 20130424
  7. CETIRIZINE [Concomitant]
     Route: 048
     Dates: start: 20130423, end: 20130426
  8. SINTROM [Concomitant]
     Route: 048
  9. HEPARIN [Concomitant]
     Indication: CEREBROVASCULAR ACCIDENT
     Route: 041
     Dates: start: 20130410, end: 20130418
  10. CLEXANE [Concomitant]
     Indication: CEREBROVASCULAR ACCIDENT
     Route: 030
     Dates: start: 20130419, end: 20130423

REACTIONS (1)
  - Dermatitis exfoliative [Recovering/Resolving]
